FAERS Safety Report 4627365-X (Version None)
Quarter: 2005Q1

REPORT INFORMATION
  Report Type: 
  Country: None (occurrence: None)
  Receive Date: 20050331
  Receipt Date: 20050316
  Transmission Date: 20050727
  Serious: Yes (Other)
  Sender: FDA-Public Use
  Company Number: 200502218

PATIENT
  Age: 63 Year
  Sex: Male

DRUGS (2)
  1. ZORAC GEL 0.1% [Suspect]
     Indication: PSORIASIS
     Dates: start: 20050110, end: 20050120
  2. DIPROSONE [Concomitant]

REACTIONS (5)
  - BURNING SENSATION [None]
  - CELLULITIS [None]
  - ERYTHEMA [None]
  - SKIN NECROSIS [None]
  - SKIN ULCER [None]
